FAERS Safety Report 7351298-1 (Version None)
Quarter: 2011Q1

REPORT INFORMATION
  Report Type: 
  Country: None (occurrence: None)
  Receive Date: 20110314
  Receipt Date: 20110301
  Transmission Date: 20110831
  Serious: Yes (Other)
  Sender: FDA-Public Use
  Company Number: FR-KINGPHARMUSA00001-K201100065

PATIENT
  Age: 60 Year
  Sex: Male

DRUGS (5)
  1. ALTACE [Suspect]
     Dosage: 2.5 MG, UNK
     Dates: start: 20110110
  2. ALTACE [Suspect]
     Indication: HYPERTENSION
     Dosage: 2.5 MG, UNK
  3. ALTACE [Suspect]
     Dosage: 5 MG, QD
     Dates: start: 20101220, end: 20110109
  4. TIOTROPIUM [Concomitant]
     Indication: ASTHMA
  5. BUDESONIDE [Concomitant]
     Indication: ASTHMA

REACTIONS (2)
  - RETINAL VEIN OCCLUSION [None]
  - VISUAL ACUITY REDUCED [None]
